FAERS Safety Report 7108091-4 (Version None)
Quarter: 2010Q4

REPORT INFORMATION
  Report Type: 
  Country: None (occurrence: None)
  Receive Date: 20101117
  Receipt Date: 20101107
  Transmission Date: 20110411
  Serious: No
  Sender: FDA-Public Use
  Company Number: US-B.I. PHARMACEUTICALS,INC./RIDGEFIELD-2010-BP-12454BP

PATIENT
  Age: 38 Year
  Sex: Male

DRUGS (1)
  1. FLOMAX [Suspect]
     Indication: NEPHROLITHIASIS
     Dosage: 0.4 MG
     Route: 048
     Dates: start: 20101104

REACTIONS (1)
  - CHEST DISCOMFORT [None]
